FAERS Safety Report 12244184 (Version 6)
Quarter: 2016Q2

REPORT INFORMATION
  Report Type: Spontaneous
  Country: US (occurrence: US)
  Receive Date: 20160406
  Receipt Date: 20160530
  Transmission Date: 20160815
  Serious: Yes (Death, Hospitalization, Other)
  Sender: FDA-Public Use
  Company Number: US-BAXTER-2016BAX017157

PATIENT
  Age: 80 Year
  Sex: Male

DRUGS (2)
  1. DIANEAL LOW CALCIUM PERITONEAL DIALYSIS SOLUTION WITH DEXTROSE [Suspect]
     Active Substance: CALCIUM CHLORIDE\DEXTROSE\MAGNESIUM CHLORIDE\SODIUM CHLORIDE\SODIUM LACTATE
     Indication: PERITONEAL DIALYSIS
     Route: 033
  2. DIANEAL LOW CALCIUM PERITONEAL DIALYSIS SOLUTION WITH DEXTROSE [Suspect]
     Active Substance: CALCIUM CHLORIDE\DEXTROSE\MAGNESIUM CHLORIDE\SODIUM CHLORIDE\SODIUM LACTATE
     Indication: PERITONEAL DIALYSIS
     Route: 033
     Dates: end: 20160426

REACTIONS (10)
  - Gastrointestinal disorder [Unknown]
  - Diarrhoea [Unknown]
  - Confusional state [Unknown]
  - Dehydration [Unknown]
  - Infection parasitic [Unknown]
  - Oxygen saturation decreased [Unknown]
  - Blood potassium decreased [Unknown]
  - Diarrhoea [Not Recovered/Not Resolved]
  - Death [Fatal]
  - Infection [Unknown]

NARRATIVE: CASE EVENT DATE: 2016
